FAERS Safety Report 5721071-6 (Version None)
Quarter: 2008Q2

REPORT INFORMATION
  Report Type: 
  Country: None (occurrence: None)
  Receive Date: 20080429
  Receipt Date: 20080421
  Transmission Date: 20081010
  Serious: Yes (Hospitalization)
  Sender: FDA-Public Use
  Company Number: IT-ABBOTT-07P-083-0363885-00

PATIENT
  Sex: Female
  Weight: 62 kg

DRUGS (6)
  1. HUMIRA [Suspect]
     Indication: RHEUMATOID ARTHRITIS
     Route: 058
     Dates: start: 20050824, end: 20060411
  2. HUMIRA [Suspect]
     Route: 058
     Dates: start: 20060411
  3. PREDNISONE [Concomitant]
     Indication: RHEUMATOID ARTHRITIS
     Dates: start: 20050824
  4. METACEN [Concomitant]
     Indication: RHEUMATOID ARTHRITIS
     Dates: start: 20050824
  5. FENTANYL CITRATE [Concomitant]
     Indication: RHEUMATOID ARTHRITIS
     Dates: start: 20050824
  6. METHOTREXATE [Concomitant]
     Indication: RHEUMATOID ARTHRITIS
     Dates: start: 20060124, end: 20060411

REACTIONS (5)
  - BENIGN LUNG NEOPLASM [None]
  - CONFUSIONAL STATE [None]
  - HYPERCAPNIA [None]
  - HYPOXIA [None]
  - MAXIMAL VOLUNTARY VENTILATION DECREASED [None]
